FAERS Safety Report 7138349-4 (Version None)
Quarter: 2010Q4

REPORT INFORMATION
  Report Type: 
  Country: None (occurrence: None)
  Receive Date: 20101118
  Receipt Date: 20101110
  Transmission Date: 20110411
  Serious: Yes (Hospitalization)
  Sender: FDA-Public Use
  Company Number: UTC-001680

PATIENT
  Age: 37 Year
  Sex: Female
  Weight: 82 kg

DRUGS (3)
  1. REMODULIN [Suspect]
     Indication: PULMONARY HYPERTENSION
     Dosage: 34.56 UG/KG (0.024 UG/KG, 1 IN 1 MIN), SUBCUTANEOUS
     Route: 058
     Dates: start: 20100811
  2. DIURETICS (DIURETICS) [Concomitant]
  3. ADCIRCA [Concomitant]

REACTIONS (1)
  - HAEMATEMESIS [None]
